FAERS Safety Report 8054664-4 (Version None)
Quarter: 2012Q1

REPORT INFORMATION
  Report Type: 
  Country: None (occurrence: None)
  Receive Date: 20120119
  Receipt Date: 20120116
  Transmission Date: 20120608
  Serious: No
  Sender: FDA-Public Use
  Company Number: US-PFIZER INC-2012012025

PATIENT
  Sex: Male
  Weight: 90.703 kg

DRUGS (4)
  1. LYRICA [Suspect]
     Indication: COMPLEX REGIONAL PAIN SYNDROME
     Dosage: 300 MG, 2X/DAY
     Dates: start: 20110101
  2. MYOBLOC [Concomitant]
     Indication: COMPLEX REGIONAL PAIN SYNDROME
     Dosage: 0.5 MG, 2X/DAY
  3. AMBIEN [Concomitant]
     Indication: SLEEP DISORDER
     Dosage: 5-10MG AS NEEDED EVERY NIGHT DAILY
  4. BACLOFEN [Concomitant]
     Indication: COMPLEX REGIONAL PAIN SYNDROME
     Dosage: 10 MG, 2X/DAY

REACTIONS (1)
  - BRADYPHRENIA [None]
